FAERS Safety Report 13243907 (Version 1)
Quarter: 2017Q1

REPORT INFORMATION
  Report Type: Spontaneous
  Country: US (occurrence: US)
  Receive Date: 20170216
  Receipt Date: 20170216
  Transmission Date: 20170428
  Serious: No
  Sender: FDA-Public Use
  Company Number: US-BAUSCH-BL-2016-009908

PATIENT
  Age: 17 Year
  Sex: Female
  Weight: 77.18 kg

DRUGS (1)
  1. BENZACLIN [Suspect]
     Active Substance: BENZOYL PEROXIDE\CLINDAMYCIN PHOSPHATE
     Indication: ACNE
     Route: 061
     Dates: start: 20160416

REACTIONS (1)
  - Burning sensation [None]

NARRATIVE: CASE EVENT DATE: 20160416
